FAERS Safety Report 8390328-5 (Version None)
Quarter: 2012Q2

REPORT INFORMATION
  Report Type: 
  Country: None (occurrence: None)
  Receive Date: 20120529
  Receipt Date: 20120522
  Transmission Date: 20120825
  Serious: Yes (Other)
  Sender: FDA-Public Use
  Company Number: CA-PFIZER INC-2012124553

PATIENT
  Age: 60 Year
  Sex: Female
  Weight: 74.83 kg

DRUGS (5)
  1. LYRICA [Suspect]
     Indication: ADIPOSIS DOLOROSA
  2. LYRICA [Suspect]
     Indication: FIBROMYALGIA
     Dosage: 75 MG, 3X/DAY
     Route: 048
     Dates: end: 20120518
  3. RABEPRAZOLE [Concomitant]
     Dosage: 20 MG, 2X/DAY
  4. SINGULAIR [Concomitant]
     Indication: HYPERSENSITIVITY
     Dosage: UNK
  5. NAPROXEN [Concomitant]
     Dosage: 500 MG, 2X/DAY

REACTIONS (8)
  - JOINT SWELLING [None]
  - INSOMNIA [None]
  - ABASIA [None]
  - PAIN IN EXTREMITY [None]
  - WEIGHT INCREASED [None]
  - OEDEMA PERIPHERAL [None]
  - PRURITUS [None]
  - ARTHRALGIA [None]
